FAERS Safety Report 9343420 (Version 2)
Quarter: 2014Q1

REPORT INFORMATION
  Report Type: Spontaneous
  Country: US (occurrence: US)
  Receive Date: 20130612
  Receipt Date: 20140320
  Transmission Date: 20141002
  Serious: No
  Sender: FDA-Public Use
  Company Number: US-BIOGENIDEC-2013BI046719

PATIENT
  Sex: Male

DRUGS (2)
  1. AVONEX [Suspect]
     Indication: MULTIPLE SCLEROSIS
     Route: 030
     Dates: start: 20130123, end: 20130215
  2. AVONEX [Suspect]
     Indication: MULTIPLE SCLEROSIS
     Route: 030
     Dates: start: 20130222, end: 20131031

REACTIONS (7)
  - General symptom [Recovered/Resolved]
  - Multiple sclerosis [Not Recovered/Not Resolved]
  - Dehydration [Unknown]
  - Haemorrhage [Recovered/Resolved]
  - Renal function test abnormal [Not Recovered/Not Resolved]
  - Anxiety [Recovered/Resolved with Sequelae]
  - Influenza like illness [Recovered/Resolved]
